FAERS Safety Report 7119718-5 (Version None)
Quarter: 2010Q4

REPORT INFORMATION
  Report Type: 
  Country: None (occurrence: None)
  Receive Date: 20101115
  Receipt Date: 20101102
  Transmission Date: 20110411
  Serious: Yes (Other)
  Sender: FDA-Public Use
  Company Number: MC201000336

PATIENT
  Age: 68 Year
  Sex: Male
  Weight: 95 kg

DRUGS (6)
  1. ANGIOMAX [Suspect]
     Indication: THROMBOLYSIS
     Dosage: 0.1 MG/KG, BOLUS, INTRAVENOUS
     Route: 040
  2. ANGIOMAX [Suspect]
     Dosage: 1.75 MG/KG, HR, INTRAVENOUS ; DOSE TITRATION ACCORDING TO APTT AND ACT, INTRAVENOUS
     Route: 042
  3. ENOXAPARIN SODIUM [Concomitant]
  4. ALTEPLASE (ALTEPLASE) [Concomitant]
  5. HEPARIN [Concomitant]
  6. WARFARIN SODIUM [Concomitant]

REACTIONS (20)
  - CYANOSIS [None]
  - DEEP VEIN THROMBOSIS [None]
  - DYSPNOEA [None]
  - FEMUR FRACTURE [None]
  - GINGIVAL BLEEDING [None]
  - HAEMODYNAMIC INSTABILITY [None]
  - HEART RATE DECREASED [None]
  - HEPARIN-INDUCED THROMBOCYTOPENIA [None]
  - HYPOTENSION [None]
  - HYPOXIA [None]
  - INJURY [None]
  - INTERNATIONAL NORMALISED RATIO INCREASED [None]
  - METABOLIC ACIDOSIS [None]
  - OFF LABEL USE [None]
  - OXYGEN SATURATION DECREASED [None]
  - PLATELET COUNT DECREASED [None]
  - PULMONARY EMBOLISM [None]
  - RESPIRATORY RATE INCREASED [None]
  - SINUS TACHYCARDIA [None]
  - VENTRICULAR HYPOKINESIA [None]
